FAERS Safety Report 6913339-2 (Version None)
Quarter: 2010Q3

REPORT INFORMATION
  Report Type: 
  Country: None (occurrence: None)
  Receive Date: 20100809
  Receipt Date: 20100726
  Transmission Date: 20110219
  Serious: Yes (Hospitalization, Other)
  Sender: FDA-Public Use
  Company Number: PHHY2010US33253

PATIENT
  Age: 39 Year
  Sex: Male

DRUGS (7)
  1. RECLAST [Suspect]
     Indication: FIBROUS DYSPLASIA OF BONE
     Dosage: 5 MG, UNK
     Route: 042
     Dates: start: 20100408, end: 20100408
  2. LISINOPRIL [Concomitant]
     Indication: HYPERTENSION
     Dosage: 20/121.5 MG DAILY
     Route: 048
     Dates: start: 20080101
  3. CIMETIDINE [Concomitant]
     Indication: GASTROOESOPHAGEAL REFLUX DISEASE
     Dosage: UNK
     Route: 048
     Dates: start: 20090101
  4. ASCORBIC ACID [Concomitant]
     Dosage: DAILY
     Route: 048
     Dates: start: 20090101
  5. VITAMIN D [Concomitant]
     Dosage: 50,000 UNITS MONTHLY
     Route: 048
     Dates: start: 20090101
  6. IBUPROFEN [Concomitant]
     Dosage: 800 MG, TID
  7. CALCIUM WITH VITAMIN D [Concomitant]
     Dosage: 600 MG, DAILY

REACTIONS (6)
  - ASPIRATION PLEURAL CAVITY [None]
  - CHEST DISCOMFORT [None]
  - COUGH [None]
  - DYSPNOEA [None]
  - MYELODYSPLASTIC SYNDROME [None]
  - PLEURAL EFFUSION [None]
